FAERS Safety Report 14924807 (Version 1)
Quarter: 2018Q2

REPORT INFORMATION
  Report Type: Spontaneous
  Country: US (occurrence: US)
  Receive Date: 20180522
  Receipt Date: 20180522
  Transmission Date: 20180711
  Serious: No
  Sender: FDA-Public Use
  Company Number: US-TARO-2017TAR00887

PATIENT
  Sex: Female

DRUGS (2)
  1. CLOTRIMAZOLE VAGINAL CREAM USP 2% 3 DAY [Suspect]
     Active Substance: CLOTRIMAZOLE
     Indication: VULVOVAGINAL MYCOTIC INFECTION
     Dosage: UNK
  2. CLOTRIMAZOLE VAGINAL CREAM USP 2% 3 DAY [Suspect]
     Active Substance: CLOTRIMAZOLE
     Dosage: UNK

REACTIONS (5)
  - Vaginal odour [Not Recovered/Not Resolved]
  - Drug administration error [Recovered/Resolved]
  - Vaginal discharge [Not Recovered/Not Resolved]
  - Drug ineffective [Recovered/Resolved]
  - Urinary tract infection [Unknown]
